FAERS Safety Report 20496824 (Version 2)
Quarter: 2022Q1

REPORT INFORMATION
  Report Type: Report from Study
  Country: US (occurrence: US)
  Receive Date: 20220221
  Receipt Date: 20220325
  Transmission Date: 20220424
  Serious: Yes (Hospitalization)
  Sender: FDA-Public Use
  Company Number: US-BAYER-2022A019670

PATIENT
  Age: 54 Year
  Sex: Male

DRUGS (3)
  1. STIVARGA [Suspect]
     Active Substance: REGORAFENIB
     Indication: Colon cancer
     Dosage: 80 MG, QD
     Route: 048
     Dates: start: 20220121, end: 20220125
  2. STIVARGA [Suspect]
     Active Substance: REGORAFENIB
     Indication: Lung neoplasm malignant
     Dosage: 80 MG, QOD
     Route: 048
     Dates: start: 20220307, end: 20220314
  3. NORCO [Concomitant]
     Active Substance: ACETAMINOPHEN\HYDROCODONE BITARTRATE
     Indication: Pain
     Dosage: UNK

REACTIONS (4)
  - Internal injury [Recovered/Resolved]
  - Pancreatitis [Recovered/Resolved]
  - Myocarditis [Recovered/Resolved]
  - Off label use [None]

NARRATIVE: CASE EVENT DATE: 20220121
